FAERS Safety Report 12646818 (Version 1)
Quarter: 2016Q3

REPORT INFORMATION
  Report Type: Spontaneous
  Country: US (occurrence: US)
  Receive Date: 20160812
  Receipt Date: 20160812
  Transmission Date: 20161109
  Serious: No
  Sender: FDA-Public Use
  Company Number: US-BEH-2016072198

PATIENT
  Sex: Male
  Weight: 104.31 kg

DRUGS (29)
  1. XELJANZ [Concomitant]
     Active Substance: TOFACITINIB CITRATE
  2. NUVIGIL [Concomitant]
     Active Substance: ARMODAFINIL
  3. AVELOX [Concomitant]
     Active Substance: MOXIFLOXACIN HYDROCHLORIDE
  4. CYMBALTA [Concomitant]
     Active Substance: DULOXETINE HYDROCHLORIDE
  5. SIMVASTATIN. [Concomitant]
     Active Substance: SIMVASTATIN
  6. RAPAFLO [Concomitant]
     Active Substance: SILODOSIN
  7. TRICOR                             /00090101/ [Concomitant]
     Active Substance: ADENOSINE
  8. GABAPENTIN. [Concomitant]
     Active Substance: GABAPENTIN
  9. TIZANIDINE. [Concomitant]
     Active Substance: TIZANIDINE
  10. ABILIFY [Concomitant]
     Active Substance: ARIPIPRAZOLE
  11. LIDOCAINE. [Concomitant]
     Active Substance: LIDOCAINE
  12. VITAMIN D                          /00107901/ [Concomitant]
     Active Substance: ERGOCALCIFEROL
  13. HIZENTRA [Suspect]
     Active Substance: HUMAN IMMUNOGLOBULIN G
     Indication: CONGENITAL HYPOGAMMAGLOBULINAEMIA
     Dosage: 30 G, QOW
     Route: 058
     Dates: start: 20140707
  14. METHOTREXATE. [Concomitant]
     Active Substance: METHOTREXATE
  15. TEMAZEPAM. [Concomitant]
     Active Substance: TEMAZEPAM
  16. PREDNISONE. [Concomitant]
     Active Substance: PREDNISONE
  17. AVODART [Concomitant]
     Active Substance: DUTASTERIDE
  18. EPIPEN [Concomitant]
     Active Substance: EPINEPHRINE
  19. XANAX [Concomitant]
     Active Substance: ALPRAZOLAM
  20. NEXIUM [Concomitant]
     Active Substance: ESOMEPRAZOLE MAGNESIUM
  21. CARDIZEM [Concomitant]
     Active Substance: DILTIAZEM HYDROCHLORIDE
  22. DYMISTA [Concomitant]
     Active Substance: AZELASTINE HYDROCHLORIDE\FLUTICASONE PROPIONATE
  23. ACETAMINOPHEN. [Concomitant]
     Active Substance: ACETAMINOPHEN
  24. DIPHENHYDRAMINE. [Concomitant]
     Active Substance: DIPHENHYDRAMINE
  25. FISH OIL [Concomitant]
     Active Substance: FISH OIL
  26. SINGULAIR [Concomitant]
     Active Substance: MONTELUKAST SODIUM
  27. RESTASIS [Concomitant]
     Active Substance: CYCLOSPORINE
  28. FENTANYL. [Concomitant]
     Active Substance: FENTANYL
  29. NORCO [Concomitant]
     Active Substance: ACETAMINOPHEN\HYDROCODONE BITARTRATE

REACTIONS (1)
  - Phlebitis [Unknown]
